FAERS Safety Report 4757791-X (Version None)
Quarter: 2005Q3

REPORT INFORMATION
  Report Type: 
  Country: None (occurrence: None)
  Receive Date: 20050826
  Receipt Date: 20050503
  Transmission Date: 20060218
  Serious: No
  Sender: FDA-Public Use
  Company Number: WAES 0309USA01982

PATIENT
  Age: 68 Year
  Sex: Male
  Weight: 83.4619 kg

DRUGS (1)
  1. ZETIA [Suspect]
     Dosage: 10 MG/DAILY/PO
     Route: 048
     Dates: start: 20030522, end: 20030923

REACTIONS (1)
  - BLOOD CREATINE PHOSPHOKINASE INCREASED [None]
